FAERS Safety Report 10455219 (Version 1)
Quarter: 2014Q3

REPORT INFORMATION
  Report Type: Spontaneous
  Country: FR (occurrence: FR)
  Receive Date: 20140916
  Receipt Date: 20140916
  Transmission Date: 20150326
  Serious: Yes (Life-Threatening)
  Sender: FDA-Public Use
  Company Number: FR-ROCHE-1460501

PATIENT
  Age: 60 Year
  Sex: Male

DRUGS (16)
  1. AMLOR [Suspect]
     Active Substance: AMLODIPINE BESYLATE
     Indication: HYPERTENSION
     Route: 048
  2. TIAPRIDE [Suspect]
     Active Substance: TIAPRIDE
     Indication: ABNORMAL BEHAVIOUR
     Route: 048
  3. ROVALCYTE [Concomitant]
     Active Substance: VALGANCICLOVIR HYDROCHLORIDE
  4. FINASTERIDE. [Concomitant]
     Active Substance: FINASTERIDE
  5. PAROXETINE [Suspect]
     Active Substance: PAROXETINE\PAROXETINE HYDROCHLORIDE
     Indication: DEPRESSION
     Route: 048
  6. MIRCERA [Concomitant]
     Active Substance: PEGZEREPOETIN ALFA
     Dosage: RESTARTED
     Route: 065
  7. SEROPLEX [Concomitant]
     Active Substance: ESCITALOPRAM OXALATE
  8. MIRCERA [Concomitant]
     Active Substance: PEGZEREPOETIN ALFA
     Route: 065
  9. XANAX [Concomitant]
     Active Substance: ALPRAZOLAM
  10. CELLCEPT [Suspect]
     Active Substance: MYCOPHENOLATE MOFETIL\MYCOPHENOLATE MOFETIL HYDROCHLORIDE
     Indication: TRANSPLANT
     Route: 048
  11. CELLCEPT [Suspect]
     Active Substance: MYCOPHENOLATE MOFETIL\MYCOPHENOLATE MOFETIL HYDROCHLORIDE
     Route: 048
  12. PROGRAF [Suspect]
     Active Substance: TACROLIMUS\TACROLIMUS ANHYDROUS
     Indication: TRANSPLANT
     Route: 048
  13. XATRAL [Concomitant]
     Active Substance: ALFUZOSIN
  14. ZOLPIDEM [Concomitant]
     Active Substance: ZOLPIDEM\ZOLPIDEM TARTRATE
  15. INEXIUM [Concomitant]
     Active Substance: ESOMEPRAZOLE
  16. SERESTA [Suspect]
     Active Substance: OXAZEPAM
     Indication: ANXIETY
     Route: 048

REACTIONS (1)
  - Vasoplegia syndrome [Recovered/Resolved with Sequelae]

NARRATIVE: CASE EVENT DATE: 20140801
